FAERS Safety Report 8116539-1 (Version None)
Quarter: 2012Q1

REPORT INFORMATION
  Report Type: 
  Country: None (occurrence: None)
  Receive Date: 20120206
  Receipt Date: 20120202
  Transmission Date: 20120608
  Serious: Yes (Death)
  Sender: FDA-Public Use
  Company Number: US-VERTEX PHARMACEUTICALS INC.-AE-2012-000771

PATIENT
  Sex: Female
  Weight: 83.536 kg

DRUGS (12)
  1. PROMETHAZINE [Concomitant]
     Route: 048
  2. AMLODIPINE [Concomitant]
     Route: 048
  3. OMEPRAZOLE [Concomitant]
     Route: 048
  4. FLEXERIL [Concomitant]
     Route: 048
  5. CALCIUM + D3 [Concomitant]
  6. PEGASYS [Concomitant]
     Indication: HEPATITIS C
     Route: 058
     Dates: start: 20111209
  7. LISINOPRIL [Concomitant]
     Route: 048
  8. OXYCODONE HCL [Concomitant]
     Indication: PAIN
     Route: 048
  9. RIBAVIRIN [Concomitant]
     Indication: HEPATITIS C
     Route: 048
     Dates: start: 20111209
  10. TRIAMCIN [Concomitant]
     Route: 061
  11. INCIVEK [Suspect]
     Indication: HEPATITIS C
     Dates: start: 20111209
  12. HYDROCHLOROTHIAZIDE [Concomitant]
     Route: 048

REACTIONS (1)
  - DEATH [None]
